FAERS Safety Report 9350408 (Version 1)
Quarter: 2013Q2

REPORT INFORMATION
  Report Type: Spontaneous
  Country: US (occurrence: None)
  Receive Date: 20130613
  Receipt Date: 20130613
  Transmission Date: 20140414
  Serious: Yes (Hospitalization)
  Sender: FDA-Public Use
  Company Number: None

PATIENT
  Age: 59 Year
  Sex: Male
  Weight: 73.9 kg

DRUGS (2)
  1. WARFARIN [Suspect]
     Indication: DEEP VEIN THROMBOSIS
     Dosage: 11.4 EVERY DAY PO
     Route: 048
  2. WARFARIN [Suspect]
     Indication: ANTIPHOSPHOLIPID ANTIBODIES
     Dosage: 11.4 EVERY DAY PO
     Route: 048

REACTIONS (1)
  - Abdominal wall haematoma [None]
